FAERS Safety Report 9780945 (Version 2)
Quarter: 2018Q1

REPORT INFORMATION
  Report Type: Spontaneous
  Country: NL (occurrence: NL)
  Receive Date: 20131224
  Receipt Date: 20180302
  Transmission Date: 20180509
  Serious: Yes (Congenital Anomaly, Other)
  Sender: FDA-Public Use
  Company Number: NL-009507513-1312NLD010475

PATIENT
  Sex: Female

DRUGS (1)
  1. DEXAMETHASONE. [Suspect]
     Active Substance: DEXAMETHASONE
     Indication: PROPHYLAXIS
     Dosage: 0.5 MG, TID, 1ST TRIMESTER
     Route: 064

REACTIONS (5)
  - Foetal exposure during pregnancy [Unknown]
  - Cognitive disorder [Unknown]
  - Adrenogenital syndrome [Unknown]
  - Cleft lip and palate [Unknown]
  - Cleft palate repair [Unknown]
